FAERS Safety Report 23277188 (Version 1)
Quarter: 2023Q4

REPORT INFORMATION
  Report Type: Spontaneous
  Country: US (occurrence: None)
  Receive Date: 20231207
  Receipt Date: 20231207
  Transmission Date: 20240110
  Serious: No
  Sender: FDA-Public Use
  Company Number: None

PATIENT
  Age: 45 Year
  Sex: Male

DRUGS (14)
  1. AMBRISENTAN [Suspect]
     Active Substance: AMBRISENTAN
     Indication: Pulmonary arterial hypertension
  2. ONDANSETRON HYDROCHLORIDE [Concomitant]
     Active Substance: ONDANSETRON HYDROCHLORIDE
  3. ADCIRCA [Concomitant]
     Active Substance: TADALAFIL
  4. UPTRAVI [Concomitant]
     Active Substance: SELEXIPAG
  5. LETAIRIS [Concomitant]
     Active Substance: AMBRISENTAN
  6. TADALAFIL [Concomitant]
     Active Substance: TADALAFIL
  7. LETAIRIS [Concomitant]
     Active Substance: AMBRISENTAN
  8. XANAX [Concomitant]
     Active Substance: ALPRAZOLAM
  9. INVEGA [Concomitant]
     Active Substance: PALIPERIDONE
  10. PANTOPRAZOLE SODIUM [Concomitant]
     Active Substance: PANTOPRAZOLE SODIUM
  11. NASAL SPRAY 12 HOUR [Concomitant]
     Active Substance: OXYMETAZOLINE HYDROCHLORIDE
  12. AMBIEN [Concomitant]
     Active Substance: ZOLPIDEM TARTRATE
  13. IMODIUM A-D [Concomitant]
     Active Substance: LOPERAMIDE HYDROCHLORIDE
  14. CVS NATURAL FIBER SUPPLEM [Concomitant]

REACTIONS (1)
  - Movement disorder [None]

NARRATIVE: CASE EVENT DATE: 20231206
